FAERS Safety Report 13035966 (Version 1)
Quarter: 2016Q4

REPORT INFORMATION
  Report Type: Spontaneous
  Country: None (occurrence: CA)
  Receive Date: 20161216
  Receipt Date: 20161216
  Transmission Date: 20170207
  Serious: Yes (Other)
  Sender: FDA-Public Use
  Company Number: CA-CELLTRION INC.-2016CA013340

PATIENT

DRUGS (17)
  1. FOSAVANCE [Concomitant]
     Active Substance: ALENDRONATE SODIUM\CHOLECALCIFEROL
  2. TYLENOL EXTRA STRENGTH [Concomitant]
     Active Substance: ACETAMINOPHEN
  3. METHOTREXATE. [Concomitant]
     Active Substance: METHOTREXATE
  4. PLAQUENIL                          /00072602/ [Concomitant]
     Active Substance: HYDROXYCHLOROQUINE DIPHOSPHATE
  5. PANTOPRAZOLE [Concomitant]
     Active Substance: PANTOPRAZOLE SODIUM
  6. OMNARIS [Concomitant]
     Active Substance: CICLESONIDE
  7. CLOPIDOGREL [Concomitant]
     Active Substance: CLOPIDOGREL BISULFATE
  8. INFLIXIMAB HOSPIRA [Suspect]
     Active Substance: INFLIXIMAB
     Dosage: 200 MG, UNK
     Route: 042
     Dates: start: 20160311, end: 20160311
  9. ASA [Concomitant]
     Active Substance: ASPIRIN
     Route: 048
  10. CHOLECALCIFEROL [Concomitant]
     Active Substance: CHOLECALCIFEROL
     Route: 048
  11. FLORINEF ACETATE [Concomitant]
     Active Substance: FLUDROCORTISONE ACETATE
  12. FOLIC ACID. [Concomitant]
     Active Substance: FOLIC ACID
  13. PREDNISONE. [Concomitant]
     Active Substance: PREDNISONE
  14. ROSUVASTATIN. [Suspect]
     Active Substance: ROSUVASTATIN
  15. LEFLUNOMIDE. [Concomitant]
     Active Substance: LEFLUNOMIDE
  16. INFLIXIMAB HOSPIRA [Suspect]
     Active Substance: INFLIXIMAB
     Indication: RHEUMATOID ARTHRITIS
     Dosage: 200 MG, UNK
     Route: 042
     Dates: start: 20160311, end: 20160311
  17. ELTROXIN [Concomitant]
     Active Substance: LEVOTHYROXINE
     Route: 048

REACTIONS (6)
  - Eye haemorrhage [Recovered/Resolved]
  - Heart rate increased [Unknown]
  - Limb injury [Recovering/Resolving]
  - Wound [Recovering/Resolving]
  - Pain in extremity [Unknown]
  - Blood pressure increased [Unknown]

NARRATIVE: CASE EVENT DATE: 20160311
